FAERS Safety Report 7137515-1 (Version None)
Quarter: 2010Q4

REPORT INFORMATION
  Report Type: 
  Country: None (occurrence: None)
  Receive Date: 20101119
  Receipt Date: 20101105
  Transmission Date: 20110411
  Serious: Yes (Hospitalization)
  Sender: FDA-Public Use
  Company Number: 2010AT000085

PATIENT
  Age: 75 Year
  Sex: Male

DRUGS (7)
  1. DILATRATE-SR [Suspect]
     Indication: ANGINA PECTORIS
     Dosage: 120 MG; QD; PO
     Route: 048
     Dates: start: 20050211, end: 20100101
  2. PIOGLITAZONE [Suspect]
     Indication: TYPE 2 DIABETES MELLITUS
     Dosage: 30 MG; QD; PO
     Route: 048
     Dates: start: 20081104
  3. HYZAAR [Suspect]
     Indication: HYPERTENSION
     Dosage: 62.5 MG; QD; PO
     Route: 048
     Dates: start: 20020301
  4. NEBIVOLOL HCL [Suspect]
     Indication: HYPERTENSION
     Dosage: 5 MG; QD; PO
     Route: 048
     Dates: start: 20040413
  5. AMLODIPINE [Suspect]
     Dosage: 5 MG; QD; PO
     Route: 048
     Dates: start: 20021015
  6. ATORVASTATIN [Concomitant]
  7. CALCIUM [Concomitant]

REACTIONS (2)
  - ANGINA PECTORIS [None]
  - LOSS OF CONSCIOUSNESS [None]
